FAERS Safety Report 4960970-X (Version None)
Quarter: 2006Q2

REPORT INFORMATION
  Report Type: 
  Country: None (occurrence: None)
  Receive Date: 20060403
  Receipt Date: 20060327
  Transmission Date: 20061013
  Serious: Yes (Other)
  Sender: FDA-Public Use
  Company Number: US-SANOFI-SYNTHELABO-A03200601818

PATIENT
  Sex: Female

DRUGS (1)
  1. ELOXATIN [Suspect]
     Indication: DRUG USE FOR UNKNOWN INDICATION
     Route: 042

REACTIONS (2)
  - EJECTION FRACTION DECREASED [None]
  - MYOCARDIAL INFARCTION [None]
